FAERS Safety Report 4604530-9 (Version None)
Quarter: 2005Q1

REPORT INFORMATION
  Report Type: 
  Country: None (occurrence: None)
  Receive Date: 20050310
  Receipt Date: 20050307
  Transmission Date: 20050727
  Serious: Yes (Disabling)
  Sender: FDA-Public Use
  Company Number: GB-MERCK-0503GBR00070

PATIENT
  Age: 74 Year
  Sex: Female
  Weight: 65 kg

DRUGS (8)
  1. FOSAMAX [Suspect]
     Indication: OSTEOPOROSIS PROPHYLAXIS
     Route: 048
     Dates: start: 20030508, end: 20041112
  2. PYRIDOSTIGMINE BROMIDE [Concomitant]
     Indication: MYASTHENIA GRAVIS
     Route: 048
     Dates: start: 20021126
  3. LETROZOLE [Concomitant]
     Indication: BREAST CANCER
     Route: 048
     Dates: start: 20021126
  4. OMEPRAZOLE [Concomitant]
     Indication: BARRETT'S OESOPHAGUS
     Route: 048
     Dates: start: 20010525
  5. ACETAMINOPHEN [Concomitant]
     Route: 065
     Dates: start: 20020117
  6. ALBUTEROL [Concomitant]
     Route: 055
  7. DIHYDROCODEINE [Concomitant]
     Route: 065
  8. PREDNISOLONE [Concomitant]
     Indication: MYASTHENIA GRAVIS
     Route: 065
     Dates: start: 20030429

REACTIONS (1)
  - OSTEONECROSIS [None]
